FAERS Safety Report 6411623-2 (Version None)
Quarter: 2009Q4

REPORT INFORMATION
  Report Type: 
  Country: None (occurrence: None)
  Receive Date: 20091020
  Receipt Date: 20091009
  Transmission Date: 20100525
  Serious: Yes (Other)
  Sender: FDA-Public Use
  Company Number: CIP09002851

PATIENT
  Sex: Female

DRUGS (1)
  1. ACTONEL [Suspect]
     Indication: OSTEOPOROSIS
     Dosage: 35 MG ONCE WEEKLY, ORAL
     Route: 048

REACTIONS (5)
  - FATIGUE [None]
  - MACULOPATHY [None]
  - PHOTOPHOBIA [None]
  - RETINAL HAEMORRHAGE [None]
  - VISION BLURRED [None]
